FAERS Safety Report 15563661 (Version 2)
Quarter: 2019Q1

REPORT INFORMATION
  Report Type: Spontaneous
  Country: GB (occurrence: GB)
  Receive Date: 20181029
  Receipt Date: 20190117
  Transmission Date: 20190417
  Serious: Yes (Hospitalization)
  Sender: FDA-Public Use
  Company Number: GB-TEVA-2018-GB-968379

PATIENT
  Age: 93 Year
  Sex: Female

DRUGS (16)
  1. BISOPROLOL [Concomitant]
     Active Substance: BISOPROLOL
  2. PREGABALIN. [Concomitant]
     Active Substance: PREGABALIN
     Route: 065
  3. ACETYLSALICYLIC ACID [Concomitant]
     Active Substance: ASPIRIN
     Route: 065
  4. RIVASTIGMINE. [Concomitant]
     Active Substance: RIVASTIGMINE
     Route: 065
  5. HYPROMELLOSE [Concomitant]
     Active Substance: HYPROMELLOSES
     Route: 065
  6. GLYCERYL TRINITRATE [Concomitant]
     Active Substance: NITROGLYCERIN
     Route: 065
  7. CLOTRIMAZOLE. [Concomitant]
     Active Substance: CLOTRIMAZOLE
     Route: 065
  8. DOCUSATE [Concomitant]
     Active Substance: DOCUSATE
     Route: 065
  9. SALBUTAMOL [Concomitant]
     Active Substance: ALBUTEROL
     Route: 065
  10. PARACETAMOL [Concomitant]
     Active Substance: ACETAMINOPHEN
     Route: 065
  11. ALLOPURINOL. [Concomitant]
     Active Substance: ALLOPURINOL
  12. OMEPRAZOLE. [Concomitant]
     Active Substance: OMEPRAZOLE
     Route: 065
  13. QVAR [Concomitant]
     Active Substance: BECLOMETHASONE DIPROPIONATE
     Dosage: 50
     Route: 065
  14. AMOXICILLIN. [Concomitant]
     Active Substance: AMOXICILLIN
     Route: 065
     Dates: start: 20180918, end: 20180919
  15. IBUPROFEN. [Concomitant]
     Active Substance: IBUPROFEN
     Route: 065
  16. BUMETANIDE. [Suspect]
     Active Substance: BUMETANIDE
     Dosage: 3 MILLIGRAM DAILY; 2MG ON MORNING, 1MG LUNCH.
     Route: 048
     Dates: end: 20180919

REACTIONS (4)
  - Acute kidney injury [Recovering/Resolving]
  - Hypophagia [Unknown]
  - Pneumonia [Unknown]
  - Dehydration [Unknown]

NARRATIVE: CASE EVENT DATE: 20180919
